FAERS Safety Report 25728300 (Version 1)
Quarter: 2025Q3

REPORT INFORMATION
  Report Type: Spontaneous
  Country: US (occurrence: US)
  Receive Date: 20250826
  Receipt Date: 20250826
  Transmission Date: 20251020
  Serious: Yes (Hospitalization)
  Sender: AMGEN
  Company Number: US-AMGEN-USASP2025167864

PATIENT
  Age: 72 Year
  Sex: Male

DRUGS (6)
  1. PREDNISONE [Suspect]
     Active Substance: PREDNISONE
     Indication: Immunosuppressant drug therapy
     Dosage: 5 MILLIGRAM, QD
     Route: 048
  2. PREDNISONE [Suspect]
     Active Substance: PREDNISONE
     Dosage: 5 MILLIGRAM, QD
     Route: 048
  3. PREDNISONE [Suspect]
     Active Substance: PREDNISONE
     Dosage: 5 MILLIGRAM, QD (VIA PEG TUBE)
     Route: 065
  4. SIROLIMUS [Concomitant]
     Active Substance: SIROLIMUS
     Indication: Immunosuppressant drug therapy
     Dosage: 1 MILLIGRAM, QD
     Route: 048
  5. SIROLIMUS [Concomitant]
     Active Substance: SIROLIMUS
     Dosage: 1 MILLIGRAM, QD
  6. SIROLIMUS [Concomitant]
     Active Substance: SIROLIMUS
     Dosage: 1 MILLIGRAM, QD, VIA PEG TUBE
     Route: 065

REACTIONS (8)
  - Road traffic accident [Unknown]
  - Injury [Unknown]
  - Rib fracture [Unknown]
  - Diaphragmatic injury [Unknown]
  - Sinus tachycardia [Unknown]
  - Respiratory disorder [Unknown]
  - Compression fracture [Unknown]
  - Incorrect route of product administration [Unknown]
